FAERS Safety Report 5975836-6 (Version None)
Quarter: 2008Q4

REPORT INFORMATION
  Report Type: 
  Country: None (occurrence: None)
  Receive Date: 20081202
  Receipt Date: 20081126
  Transmission Date: 20090506
  Serious: Yes (Other)
  Sender: FDA-Public Use
  Company Number: A0734603A

PATIENT
  Age: 59 Year
  Sex: Female
  Weight: 131.8 kg

DRUGS (8)
  1. AVANDIA [Suspect]
     Dosage: 8MG PER DAY
     Route: 048
     Dates: start: 20021101, end: 20060901
  2. PROTONIX [Concomitant]
     Dosage: 40MG TWICE PER DAY
  3. GLYBURIDE [Concomitant]
     Dosage: 10MG PER DAY
     Route: 048
  4. MULTI-VITAMIN [Concomitant]
  5. LOPRESSOR [Concomitant]
     Dosage: 25MG TWICE PER DAY
     Route: 048
  6. NITRO-DUR [Concomitant]
  7. LASIX [Concomitant]
     Dosage: 40MG PER DAY
     Route: 048
  8. PRAVACHOL [Concomitant]
     Dosage: 40MG PER DAY
     Route: 048

REACTIONS (7)
  - ANEURYSM [None]
  - ANXIETY [None]
  - CARDIAC FAILURE CONGESTIVE [None]
  - HEART DISEASE CONGENITAL [None]
  - HEART INJURY [None]
  - MYOCARDIAL INFARCTION [None]
  - PAIN [None]
